FAERS Safety Report 8344650-9 (Version None)
Quarter: 2012Q2

REPORT INFORMATION
  Report Type: 
  Country: None (occurrence: None)
  Receive Date: 20120508
  Receipt Date: 20120430
  Transmission Date: 20120825
  Serious: Yes (Other)
  Sender: FDA-Public Use
  Company Number: US-JNJFOC-20120306335

PATIENT
  Sex: Male
  Weight: 83.92 kg

DRUGS (3)
  1. COGENTIN [Concomitant]
     Indication: TREMOR
     Route: 048
     Dates: start: 19700101
  2. HALDOL [Suspect]
     Indication: PSYCHOTIC DISORDER
     Route: 030
     Dates: start: 19920101, end: 19920101
  3. HALDOL [Suspect]
     Route: 048
     Dates: start: 19920101, end: 19920101

REACTIONS (3)
  - PARKINSONISM [None]
  - EXTRAPYRAMIDAL DISORDER [None]
  - FALL [None]
